FAERS Safety Report 19311816 (Version 3)
Quarter: 2021Q3

REPORT INFORMATION
  Report Type: Spontaneous
  Country: IT (occurrence: IT)
  Receive Date: 20210527
  Receipt Date: 20210909
  Transmission Date: 20211014
  Serious: Yes (Life-Threatening, Hospitalization, Other)
  Sender: FDA-Public Use
  Company Number: IT-AUROBINDO-AUR-APL-2021-021529

PATIENT
  Age: 45 Year
  Sex: Male

DRUGS (6)
  1. DIAMORPHINE [Suspect]
     Active Substance: DIAMORPHINE
     Indication: PRODUCT USED FOR UNKNOWN INDICATION
     Dosage: UNK
     Route: 065
  2. SODIUM HYDROGEN CARBONATE [Concomitant]
     Active Substance: SODIUM BICARBONATE
     Indication: PRODUCT USED FOR UNKNOWN INDICATION
     Dosage: 200 MILLILITER, ONCE A DAY(100 ML, BID)
     Route: 065
  3. COCAINE [Suspect]
     Active Substance: COCAINE
     Indication: PRODUCT USED FOR UNKNOWN INDICATION
     Dosage: UNK
     Route: 065
  4. CALCIUM GLUCONATE. [Concomitant]
     Active Substance: CALCIUM GLUCONATE
     Indication: PRODUCT USED FOR UNKNOWN INDICATION
     Dosage: UNK (ELECTROLYTE SUPPORT)
     Route: 065
  5. ROSUVASTATIN 10MG [Suspect]
     Active Substance: ROSUVASTATIN
     Indication: TYPE IIA HYPERLIPIDAEMIA
     Dosage: 10 MILLIGRAM, ONCE A DAY
     Route: 048
  6. MORPHINE [Concomitant]
     Active Substance: MORPHINE
     Indication: MYALGIA
     Dosage: 0.1 MILLIGRAM/KILOGRAM, EVERY HOUR
     Route: 041

REACTIONS (15)
  - Anuria [Recovering/Resolving]
  - Renal failure [Recovering/Resolving]
  - Somnolence [Unknown]
  - Hypotension [Recovering/Resolving]
  - Rhabdomyolysis [Recovering/Resolving]
  - Drug abuse [Unknown]
  - Hypertransaminasaemia [Recovering/Resolving]
  - Myalgia [Not Recovered/Not Resolved]
  - Drug interaction [Recovering/Resolving]
  - Dehydration [Unknown]
  - Confusional state [Unknown]
  - Agitation [Unknown]
  - Hypercreatininaemia [Recovering/Resolving]
  - Acute kidney injury [Recovering/Resolving]
  - Asthenia [Unknown]
